FAERS Safety Report 9519798 (Version 1)
Quarter: 2013Q1

REPORT INFORMATION
  Report Type: Spontaneous
  Country: US (occurrence: None)
  Receive Date: 20130305
  Receipt Date: 20130305
  Transmission Date: 20140127
  Serious: Yes (Other)
  Sender: FDA-Public Use
  Company Number: 163-21880-12080778

PATIENT
  Age: 79 Year
  Sex: Female
  Weight: 53.52 kg

DRUGS (7)
  1. REVLIMID [Suspect]
     Indication: MYELODYSPLASTIC SYNDROME
     Route: 048
     Dates: start: 20120713
  2. CALCIUM (CALCIUM) [Concomitant]
  3. EVISTA (RALOXIFENE HYDROCHLORIDE) [Concomitant]
  4. EXJADE (DEFERASIROX) [Concomitant]
  5. VITAMINS [Concomitant]
  6. VITAMIN D (ERGOCALCIFEROL) [Concomitant]
  7. CEPACOL (CETYLPYRIDINIUM CHLORIDE) [Concomitant]

REACTIONS (7)
  - Platelet count decreased [None]
  - Haemoglobin decreased [None]
  - Haematocrit decreased [None]
  - White blood cell count decreased [None]
  - Rash maculo-papular [None]
  - Cough [None]
  - Diarrhoea [None]
